FAERS Safety Report 5406707-1 (Version None)
Quarter: 2007Q3

REPORT INFORMATION
  Report Type: 
  Country: None (occurrence: None)
  Receive Date: 20070803
  Receipt Date: 20070803
  Transmission Date: 20080115
  Serious: No
  Sender: FDA-Public Use
  Company Number: None

PATIENT
  Age: 59 Year
  Sex: Female
  Weight: 77.1115 kg

DRUGS (8)
  1. OXALAPLATIN 160MG [Suspect]
     Indication: COLON CANCER
     Dosage: 160MG IV
     Route: 042
     Dates: start: 20070430
  2. OXALAPLATIN 160MG [Suspect]
     Indication: COLON CANCER
     Dosage: 160MG IV
     Route: 042
     Dates: start: 20070514
  3. OXALAPLATIN 160MG [Suspect]
     Indication: COLON CANCER
     Dosage: 160MG IV
     Route: 042
     Dates: start: 20070529
  4. LEUCOVORIN 376MG [Suspect]
     Dosage: 376MG IV
     Route: 042
     Dates: start: 20070611
  5. LEUCOVORIN 376MG [Suspect]
     Dosage: 376MG IV
     Route: 042
     Dates: start: 20070625
  6. LEUCOVORIN 376MG [Suspect]
     Dosage: 376MG IV
     Route: 042
     Dates: start: 20070709
  7. ANZEMET [Suspect]
     Dosage: 100MG
  8. DECADRON [Suspect]
     Dosage: 10MG

REACTIONS (5)
  - BLOOD PRESSURE INCREASED [None]
  - CHEST PAIN [None]
  - HEART RATE INCREASED [None]
  - INFUSION RELATED REACTION [None]
  - PRURITUS [None]
